FAERS Safety Report 12470593 (Version 3)
Quarter: 2018Q1

REPORT INFORMATION
  Report Type: Report from Study
  Country: GB (occurrence: GB)
  Receive Date: 20160616
  Receipt Date: 20180322
  Transmission Date: 20180508
  Serious: Yes (Death)
  Sender: FDA-Public Use
  Company Number: GB-ROCHE-1776756

PATIENT
  Age: 69 Year
  Sex: Female

DRUGS (3)
  1. SULPHASALAZINE [Concomitant]
     Active Substance: SULFASALAZINE
  2. METHOTREXATE. [Concomitant]
     Active Substance: METHOTREXATE
  3. RITUXIMAB. [Suspect]
     Active Substance: RITUXIMAB
     Indication: RHEUMATOID ARTHRITIS
     Route: 065
     Dates: start: 20080710, end: 20160509

REACTIONS (1)
  - Lung cancer metastatic [Fatal]

NARRATIVE: CASE EVENT DATE: 20160115
